FAERS Safety Report 17144760 (Version 1)
Quarter: 2019Q4

REPORT INFORMATION
  Report Type: Spontaneous
  Country: US (occurrence: US)
  Receive Date: 20191212
  Receipt Date: 20191212
  Transmission Date: 20200122
  Serious: No
  Sender: FDA-Public Use
  Company Number: US-NOVEN PHARMACEUTICALS, INC.-US2019000198

PATIENT

DRUGS (2)
  1. ESTRADIOL(GP) [Suspect]
     Active Substance: ESTRADIOL
     Indication: HOT FLUSH
     Dosage: APPLYING TWO 0.1 MG PATCH TO MAKE TOTAL DOSE OF 0.2 MG, 2/WK
     Route: 062
     Dates: start: 201901
  2. ESTRADIOL(GP) [Suspect]
     Active Substance: ESTRADIOL
     Indication: NIGHT SWEATS

REACTIONS (3)
  - No adverse event [Unknown]
  - Off label use [Not Recovered/Not Resolved]
  - Product adhesion issue [Not Recovered/Not Resolved]

NARRATIVE: CASE EVENT DATE: 2019
